FAERS Safety Report 5443839-6 (Version None)
Quarter: 2007Q3

REPORT INFORMATION
  Report Type: 
  Country: None (occurrence: None)
  Receive Date: 20070905
  Receipt Date: 20070821
  Transmission Date: 20080115
  Serious: No
  Sender: FDA-Public Use
  Company Number: US-BOEHRINGER INGELHEIM PHARMACEUTICALS, INC.-2007-BP-06660BP

PATIENT
  Age: 71 Year
  Sex: Female

DRUGS (13)
  1. SPIRIVA [Suspect]
     Indication: CHRONIC OBSTRUCTIVE PULMONARY DISEASE
     Route: 055
     Dates: start: 20050101
  2. SPIRIVA [Suspect]
     Indication: ASTHMA
  3. SPIRIVA [Suspect]
     Indication: BRONCHITIS
  4. ADVAIR DISKUS 100/50 [Concomitant]
  5. XOPENEX [Concomitant]
  6. LISINOPRIL [Concomitant]
  7. UNIPHYL [Concomitant]
  8. MUCINEX [Concomitant]
  9. NEXIUM [Concomitant]
  10. LORAZEPAM [Concomitant]
  11. CHLORAZEPAM [Concomitant]
  12. OXYGEN [Concomitant]
  13. ASPIRIN [Concomitant]

REACTIONS (1)
  - DYSPNOEA [None]
